FAERS Safety Report 4301024-5 (Version None)
Quarter: 2004Q1

REPORT INFORMATION
  Report Type: 
  Country: None (occurrence: None)
  Receive Date: 20040219
  Receipt Date: 20040209
  Transmission Date: 20041129
  Serious: No
  Sender: FDA-Public Use
  Company Number: 04P-167-0250114-00

PATIENT
  Age: 37 Year
  Sex: Female
  Weight: 92 kg

DRUGS (4)
  1. MERIDIA [Suspect]
     Indication: WEIGHT CONTROL
     Dosage: 10 MG, 1 IN 1 D, PER ORAL
     Route: 048
     Dates: start: 20031013
  2. AMOXICILLIN [Concomitant]
  3. IBUPROFEN [Concomitant]
  4. PARACETAMOL [Concomitant]

REACTIONS (3)
  - BLOOD BLISTER [None]
  - PNEUMONIA [None]
  - VIRAL UPPER RESPIRATORY TRACT INFECTION [None]
